FAERS Safety Report 5419107-5 (Version None)
Quarter: 2007Q3

REPORT INFORMATION
  Report Type: 
  Country: None (occurrence: None)
  Receive Date: 20070820
  Receipt Date: 20070807
  Transmission Date: 20080115
  Serious: Yes (Other)
  Sender: FDA-Public Use
  Company Number: DE-ELI_LILLY_AND_COMPANY-DE200708001650

PATIENT
  Age: 51 Year
  Sex: Female

DRUGS (3)
  1. ZYPREXA [Suspect]
     Indication: SCHIZOPHRENIA
     Dosage: 2.5 MG, DAILY (1/D)
     Route: 048
     Dates: start: 20000101
  2. ANTIPSYCHOTICS [Concomitant]
     Dosage: UNK, SINCE 32 YEARS
     Route: 065
  3. CYMBALTA [Suspect]
     Indication: SCHIZOPHRENIA
     Dosage: UNK, UNKNOWN
     Route: 065
     Dates: start: 20060101

REACTIONS (1)
  - RETINAL DISORDER [None]
